FAERS Safety Report 21876156 (Version 2)
Quarter: 2023Q1

REPORT INFORMATION
  Report Type: Spontaneous
  Country: PR (occurrence: PR)
  Receive Date: 20230118
  Receipt Date: 20230217
  Transmission Date: 20230418
  Serious: Yes (Life-Threatening, Hospitalization, Other)
  Sender: FDA-Public Use
  Company Number: PR-Vifor (International) Inc.-VIT-2023-00147

PATIENT
  Age: 52 Year
  Sex: Male
  Weight: 52 kg

DRUGS (1)
  1. MIRCERA [Suspect]
     Active Substance: METHOXY POLYETHYLENE GLYCOL-EPOETIN BETA
     Indication: Nephrogenic anaemia
     Route: 040
     Dates: start: 20220730, end: 20221217

REACTIONS (6)
  - Drug hypersensitivity [Recovered/Resolved]
  - Seizure [Recovered/Resolved]
  - Lethargy [Recovered/Resolved]
  - Respiratory distress [Recovered/Resolved]
  - Unresponsive to stimuli [Recovered/Resolved]
  - Muscle rigidity [Recovered/Resolved]

NARRATIVE: CASE EVENT DATE: 20221217
